FAERS Safety Report 6520697-X (Version None)
Quarter: 2009Q4

REPORT INFORMATION
  Report Type: 
  Country: None (occurrence: None)
  Receive Date: 20091229
  Receipt Date: 20091228
  Transmission Date: 20100525
  Serious: Yes (Hospitalization)
  Sender: FDA-Public Use
  Company Number: US-ROXANE LABORATORIES, INC.-2009-RO-01293RO

PATIENT
  Sex: Male

DRUGS (1)
  1. NAPROXEN [Suspect]
     Indication: ARTHRALGIA
     Route: 048
     Dates: start: 20091001

REACTIONS (4)
  - DIARRHOEA [None]
  - DIVERTICULITIS [None]
  - PNEUMONIA [None]
  - VOMITING [None]
